FAERS Safety Report 6460126-8 (Version None)
Quarter: 2009Q4

REPORT INFORMATION
  Report Type: 
  Country: None (occurrence: None)
  Receive Date: 20091129
  Receipt Date: 20091124
  Transmission Date: 20100525
  Serious: Yes (Life-Threatening, Hospitalization)
  Sender: FDA-Public Use
  Company Number: PHHY2009JP13580

PATIENT
  Sex: Male
  Weight: 72 kg

DRUGS (15)
  1. ICL670A ICL+DISTAB [Suspect]
     Indication: MYELOFIBROSIS
     Dosage: 1375 MG, QD
     Route: 048
     Dates: start: 20080904, end: 20090205
  2. ICL670A ICL+DISTAB [Suspect]
     Indication: IRON OVERLOAD
     Dosage: 1000 MG, QD
     Route: 048
     Dates: start: 20090206, end: 20090312
  3. AMARYL [Suspect]
     Indication: DIABETES MELLITUS
     Dosage: 0.5 MG, UNK
     Route: 048
     Dates: start: 20080904, end: 20090303
  4. AMARYL [Suspect]
     Dosage: 1 MG, DAILY
     Route: 048
     Dates: start: 20090305, end: 20090904
  5. PREDNISOLONE [Suspect]
     Indication: MYELOFIBROSIS
     Dosage: 10 MG, UNK
     Route: 048
     Dates: start: 20080904, end: 20090303
  6. PREDNISOLONE [Suspect]
     Dosage: 10 MG, DAILY
     Route: 048
     Dates: start: 20090305, end: 20090904
  7. FOSAMAX [Suspect]
     Indication: DIABETES MELLITUS
     Dosage: 35 MG, UNK
     Route: 048
     Dates: start: 20080904, end: 20090303
  8. FOSAMAX [Suspect]
     Dosage: 35 MG, DAILY
     Route: 048
     Dates: start: 20090305, end: 20090904
  9. METFORMIN HCL [Suspect]
     Indication: DIABETES MELLITUS
     Dosage: 500 MG, UNK
     Route: 048
     Dates: start: 20080904, end: 20090303
  10. METFORMIN HCL [Suspect]
     Dosage: 500 MG, DAILY
     Route: 048
     Dates: start: 20090305, end: 20090518
  11. CEPHADOL [Suspect]
     Indication: DIABETES MELLITUS
     Dosage: 75 MG, UNK
     Route: 048
     Dates: start: 20080904, end: 20090303
  12. CEPHADOL [Suspect]
     Dosage: 75 MG, DAILY
     Route: 048
     Dates: start: 20090305, end: 20090904
  13. DESFERAL [Concomitant]
     Dosage: 1000 MG, UNK
     Route: 030
     Dates: start: 20071220, end: 20080821
  14. RED BLOOD CELLS [Concomitant]
     Dosage: 2 U, QW
     Dates: start: 20080904, end: 20090304
  15. RED BLOOD CELLS [Concomitant]
     Dosage: 2 U, QW
     Dates: start: 20090305, end: 20090904

REACTIONS (8)
  - ABSCESS JAW [None]
  - BLOOD CREATININE INCREASED [None]
  - BLOOD UREA INCREASED [None]
  - DIARRHOEA [None]
  - RENAL IMPAIRMENT [None]
  - SEPSIS [None]
  - STOMATITIS [None]
  - SUBCUTANEOUS ABSCESS [None]
